FAERS Safety Report 24368957 (Version 1)
Quarter: 2024Q3

REPORT INFORMATION
  Report Type: Report from Study
  Country: US (occurrence: US)
  Receive Date: 20240927
  Receipt Date: 20240927
  Transmission Date: 20241016
  Serious: Yes (Other)
  Sender: ABBVIE
  Company Number: US-ABBVIE-5933080

PATIENT
  Sex: Male

DRUGS (3)
  1. BOTOX [Suspect]
     Active Substance: ONABOTULINUMTOXINA
     Indication: Product used for unknown indication
     Dosage: TIME INTERVAL: AS NECESSARY
     Route: 065
  2. ORGOVYX [Suspect]
     Active Substance: RELUGOLIX
     Indication: Neoplasm malignant
     Route: 048
     Dates: start: 20230628
  3. XTANDI [Concomitant]
     Active Substance: ENZALUTAMIDE
     Indication: Product used for unknown indication

REACTIONS (12)
  - Neuropathy peripheral [Unknown]
  - Diabetes mellitus [Unknown]
  - Pain in extremity [Unknown]
  - Insomnia [Unknown]
  - Urinary incontinence [Unknown]
  - Back pain [Unknown]
  - Dysuria [Unknown]
  - Cystitis radiation [Unknown]
  - Intervertebral disc disorder [Unknown]
  - Burning sensation [Unknown]
  - Pain [Unknown]
  - Neuralgia [Unknown]
